FAERS Safety Report 7830910-4 (Version None)
Quarter: 2011Q4

REPORT INFORMATION
  Report Type: 
  Country: None (occurrence: None)
  Receive Date: 20111021
  Receipt Date: 20111018
  Transmission Date: 20120403
  Serious: No
  Sender: FDA-Public Use
  Company Number: US-PFIZER INC-2011250888

PATIENT
  Sex: Male
  Weight: 107.3 kg

DRUGS (4)
  1. PRISTIQ [Suspect]
     Indication: ANXIETY
     Dosage: 50 MG, 1X/DAY
     Route: 048
     Dates: start: 20100101
  2. PRISTIQ [Suspect]
     Indication: DEPRESSION
  3. GABAPENTIN [Concomitant]
     Dosage: 900 MG, 1X/DAY
  4. NABUMETONE [Concomitant]
     Dosage: UNK

REACTIONS (1)
  - VITAMIN D DECREASED [None]
